FAERS Safety Report 5878351-3 (Version None)
Quarter: 2008Q3

REPORT INFORMATION
  Report Type: 
  Country: None (occurrence: None)
  Receive Date: 20080911
  Receipt Date: 20080830
  Transmission Date: 20090109
  Serious: Yes (Other)
  Sender: FDA-Public Use
  Company Number: US-PFIZER INC-2008063241

PATIENT
  Age: 61 Year
  Sex: Male

DRUGS (2)
  1. SOLU-MEDROL [Suspect]
     Indication: DIZZINESS
     Dosage: TEXT:125MG/1CC
     Route: 001
     Dates: start: 20080722, end: 20080722
  2. SOLU-MEDROL [Suspect]
     Indication: DEAFNESS NEUROSENSORY

REACTIONS (6)
  - BURNING SENSATION [None]
  - EAR PAIN [None]
  - INJECTION SITE PAIN [None]
  - MUSCLE SPASMS [None]
  - NAUSEA [None]
  - RESTLESSNESS [None]
